FAERS Safety Report 25958334 (Version 1)
Quarter: 2025Q4

REPORT INFORMATION
  Report Type: Spontaneous
  Country: US (occurrence: None)
  Receive Date: 20251024
  Receipt Date: 20251024
  Transmission Date: 20260117
  Serious: Yes (Other)
  Sender: FDA-CTU
  Company Number: None

PATIENT
  Age: 55 Year
  Sex: Female
  Weight: 92.97 kg

DRUGS (6)
  1. SKYRIZI [Suspect]
     Active Substance: RISANKIZUMAB-RZAA
     Indication: Crohn^s disease
     Dosage: 360 MG Q 8 WEEKS SUBCUTANEOUS ?
     Route: 058
     Dates: start: 20250118, end: 20250902
  2. CELECOXIB [Concomitant]
     Active Substance: CELECOXIB
  3. est estrogen-methy [Concomitant]
  4. MODAFINIL [Concomitant]
     Active Substance: MODAFINIL
  5. BUPRENORPHINE\NALOXONE [Concomitant]
     Active Substance: BUPRENORPHINE\NALOXONE
  6. VITAMIN D [Concomitant]
     Active Substance: VITAMIN D NOS

REACTIONS (1)
  - Arthralgia [None]

NARRATIVE: CASE EVENT DATE: 20250210
